FAERS Safety Report 7807375-1 (Version None)
Quarter: 2011Q4

REPORT INFORMATION
  Report Type: 
  Country: None (occurrence: None)
  Receive Date: 20111011
  Receipt Date: 20110812
  Transmission Date: 20120403
  Serious: Yes (Hospitalization)
  Sender: FDA-Public Use
  Company Number: DE-UCBSA-000401

PATIENT
  Age: 54 Year
  Sex: Female
  Weight: 64 kg

DRUGS (6)
  1. LACOSAMIDE [Suspect]
     Dates: start: 20090127, end: 20090202
  2. LACOSAMIDE [Suspect]
     Dates: start: 20090203, end: 20090205
  3. LAMOTRIGINE [Concomitant]
  4. LACOSAMIDE [Suspect]
     Dates: start: 20090206
  5. DESITIN [Concomitant]
     Indication: EPILEPSY
     Dates: start: 20030101
  6. APYDAN EXTENT [Concomitant]
     Indication: EPILEPSY
     Dates: start: 20090127

REACTIONS (1)
  - SOMATOFORM DISORDER [None]
